FAERS Safety Report 7065358-6 (Version None)
Quarter: 2010Q4

REPORT INFORMATION
  Report Type: 
  Country: None (occurrence: None)
  Receive Date: 20101027
  Receipt Date: 20101012
  Transmission Date: 20110411
  Serious: Yes (Other)
  Sender: FDA-Public Use
  Company Number: AU-GENENTECH-307578

PATIENT
  Sex: Female

DRUGS (2)
  1. LUCENTIS [Suspect]
     Indication: MACULAR DEGENERATION
     Dosage: 0.05 ML, UNK
     Route: 031
     Dates: start: 20100928
  2. BETADINE [Suspect]
     Indication: INFECTION PROPHYLAXIS
     Dosage: 3 GTT, UNK
     Route: 031

REACTIONS (1)
  - CORNEAL ABRASION [None]
